FAERS Safety Report 14373703 (Version 1)
Quarter: 2018Q1

REPORT INFORMATION
  Report Type: Spontaneous
  Country: US (occurrence: US)
  Receive Date: 20180110
  Receipt Date: 20180110
  Transmission Date: 20180509
  Serious: Yes (Hospitalization)
  Sender: FDA-Public Use
  Company Number: US-ALLERGAN-1800609US

PATIENT
  Age: 1 Year
  Sex: Female
  Weight: 9 kg

DRUGS (1)
  1. BOTULINUM TOXIN TYPE A UNK [Suspect]
     Active Substance: BOTULINUM TOXIN TYPE A
     Indication: DYSPHAGIA
     Dosage: 30 UNITS, SINGLE
     Route: 030

REACTIONS (11)
  - Gastrooesophageal reflux disease [Recovering/Resolving]
  - Choking [Recovering/Resolving]
  - Increased bronchial secretion [Recovering/Resolving]
  - Drug ineffective for unapproved indication [Unknown]
  - Vomiting [Recovering/Resolving]
  - Respiration abnormal [Recovering/Resolving]
  - Dysphagia [Recovering/Resolving]
  - Off label use [Unknown]
  - Dyspnoea [Recovering/Resolving]
  - Pneumonia aspiration [Recovering/Resolving]
  - Aspiration [Recovered/Resolved]
